FAERS Safety Report 19588425 (Version 2)
Quarter: 2023Q1

REPORT INFORMATION
  Report Type: Spontaneous
  Country: DE (occurrence: DE)
  Receive Date: 20210721
  Receipt Date: 20230127
  Transmission Date: 20230417
  Serious: Yes (Hospitalization)
  Sender: FDA-Public Use
  Company Number: None

PATIENT
  Age: 69 Year
  Sex: Female
  Weight: 46 kg

DRUGS (13)
  1. CARBOPLATIN [Suspect]
     Active Substance: CARBOPLATIN
     Indication: Product used for unknown indication
     Dosage: ACCORDING TO THE SCHEME
     Route: 042
  2. GEMCITABINE [Suspect]
     Active Substance: GEMCITABINE
     Indication: Product used for unknown indication
     Dosage: ACCORDING TO THE SCHEME
  3. ACETYLCYSTEINE [Concomitant]
     Active Substance: ACETYLCYSTEINE
     Dosage: 600 MG, 1-0-0-0, EFFERVESCENT TABLETS
  4. ALUMINUM HYDROXIDE\MAGNESIUM HYDROXIDE [Concomitant]
     Active Substance: ALUMINUM HYDROXIDE\MAGNESIUM HYDROXIDE
     Dosage: 230 MG, AS NEEDED, SUSPENSION
  5. CHOLECALCIFEROL [Concomitant]
     Active Substance: CHOLECALCIFEROL
     Dosage: 20,000 IU, ACCORDING TO THE SCHEME, CAPSULE
  6. DALTEPARIN [Concomitant]
     Active Substance: DALTEPARIN
     Dosage: 2500 IU, 0-0-1-0, PRE-FILLED SYRINGES
  7. HYDROMORPHONE [Concomitant]
     Active Substance: HYDROMORPHONE
     Dosage: 1.3 MG, AS NEEDED, CAPSULE
  8. LEVOTHYROXINE SODIUM [Concomitant]
     Active Substance: LEVOTHYROXINE SODIUM
     Dosage: 0.025 MG, 1-0-0-0, TABLET
  9. METAMIZOLE [Concomitant]
     Active Substance: METAMIZOLE
     Dosage: 500 MG, AS NEEDED, DROPS
  10. PANTOPRAZOLE [Concomitant]
     Active Substance: PANTOPRAZOLE
     Dosage: 40 MG, 1-0-0-0, TABLET
  11. SODIUM PICOSULFATE [Concomitant]
     Active Substance: SODIUM PICOSULFATE
     Dosage: 3.75 MG, 1-0-0-0, DROPS
  12. TEMAZEPAM [Concomitant]
     Active Substance: TEMAZEPAM
     Dosage: 10 MG, 0-0-0-1, CAPSULE
  13. TRAMADOL [Concomitant]
     Active Substance: TRAMADOL
     Dosage: 75 MG, AS NEEDED, ORAL SOLUTION

REACTIONS (5)
  - Pyrexia [Recovering/Resolving]
  - Renal impairment [Recovering/Resolving]
  - General physical health deterioration [Recovering/Resolving]
  - Oliguria [Recovering/Resolving]
  - Abdominal pain lower [Recovering/Resolving]
